FAERS Safety Report 5064923-5 (Version None)
Quarter: 2006Q3

REPORT INFORMATION
  Report Type: 
  Country: None (occurrence: None)
  Receive Date: 20060727
  Receipt Date: 20060727
  Transmission Date: 20061208
  Serious: Yes (Hospitalization)
  Sender: FDA-Public Use
  Company Number: None

PATIENT
  Age: 91 Year
  Sex: Female
  Weight: 59.3 kg

DRUGS (11)
  1. HUMALOG MIX 75/25 [Suspect]
     Indication: DIABETES MELLITUS NON-INSULIN-DEPENDENT
     Dosage: SEE IMAGE [CHRONIC]
  2. HUMALOG [Suspect]
     Indication: DIABETES MELLITUS NON-INSULIN-DEPENDENT
     Dosage: SEE IMAGE
  3. HUMULIN R [Concomitant]
  4. INSULIN ASPART [Concomitant]
  5. HUMALOG SLIDING SCALE [Concomitant]
  6. MAXZIDE [Concomitant]
  7. ASPIRIN [Concomitant]
  8. DETROL [Concomitant]
  9. TOPROL-XL [Concomitant]
  10. VASOTEC [Concomitant]
  11. CALCITRATE [Concomitant]

REACTIONS (2)
  - BLOOD GLUCOSE DECREASED [None]
  - MENTAL STATUS CHANGES [None]
